FAERS Safety Report 6927732-5 (Version None)
Quarter: 2010Q3

REPORT INFORMATION
  Report Type: 
  Country: None (occurrence: None)
  Receive Date: 20100812
  Receipt Date: 20100809
  Transmission Date: 20110219
  Serious: Yes (Other)
  Sender: FDA-Public Use
  Company Number: A0874537A

PATIENT
  Sex: Female

DRUGS (1)
  1. METHYLCELLULOSE (FORMULATION UNKNOWN) SUGAR FREE ORANGE (METHYLCELLULO [Suspect]
     Dosage: ORAL
     Route: 048

REACTIONS (1)
  - NEPHROLITHIASIS [None]
